FAERS Safety Report 11294699 (Version 2)
Quarter: 2015Q3

REPORT INFORMATION
  Report Type: Report from Study
  Country: US (occurrence: US)
  Receive Date: 20150723
  Receipt Date: 20150813
  Transmission Date: 20151125
  Serious: Yes (Life-Threatening, Other)
  Sender: FDA-Public Use
  Company Number: US-009507513-1507USA008426

PATIENT

DRUGS (2)
  1. VELIPARIB [Suspect]
     Active Substance: VELIPARIB
     Indication: BRAIN NEOPLASM
     Dosage: TWICE DAILY, ON DAYS 1-5 OF EACH 28-DAY COURSE
     Route: 048
  2. TEMODAR [Suspect]
     Active Substance: TEMOZOLOMIDE
     Indication: BRAIN NEOPLASM
     Dosage: ONCE DAILY, ON DAYS 1-5 OF EACH 28-DAY COURSE
     Route: 048

REACTIONS (8)
  - Neutropenia [Unknown]
  - Infection [Unknown]
  - Lymphopenia [Unknown]
  - Thrombocytopenia [Unknown]
  - Nausea [Unknown]
  - Leukopenia [Unknown]
  - Anaemia [Unknown]
  - Vomiting [Unknown]
